FAERS Safety Report 6428589-1 (Version None)
Quarter: 2009Q4

REPORT INFORMATION
  Report Type: 
  Country: None (occurrence: None)
  Receive Date: 20091102
  Receipt Date: 20091026
  Transmission Date: 20100525
  Serious: Yes (Hospitalization)
  Sender: FDA-Public Use
  Company Number: 2009-04455

PATIENT
  Age: 68 Year
  Sex: Male
  Weight: 95.7 kg

DRUGS (8)
  1. VELCADE [Suspect]
     Indication: MULTIPLE MYELOMA
     Dosage: 2.8 MG, INTRAVENOUS
     Route: 042
     Dates: start: 20091009, end: 20091019
  2. THALIDOMIDE [Suspect]
     Indication: MULTIPLE MYELOMA
     Dosage: 200 MG, ORAL
     Route: 048
     Dates: start: 20091009, end: 20091022
  3. DEXAMETHASONE             TABLET [Suspect]
     Indication: MULTIPLE MYELOMA
     Dosage: 20 MG, ORAL
     Route: 048
     Dates: start: 20091009, end: 20091020
  4. ASPIRIN [Concomitant]
  5. LIPITOR [Concomitant]
  6. FLEXERIL [Concomitant]
  7. ACIPHEX [Concomitant]
  8. HYDROCHLOROTHAZIDE (HYDROCHLOROTHIAZIDE) [Concomitant]

REACTIONS (6)
  - DRY EYE [None]
  - HAEMATOCRIT DECREASED [None]
  - HAEMATURIA [None]
  - NEUTROPHIL PERCENTAGE INCREASED [None]
  - PERIORBITAL CELLULITIS [None]
  - PLATELET COUNT DECREASED [None]
